FAERS Safety Report 21086317 (Version 2)
Quarter: 2022Q3

REPORT INFORMATION
  Report Type: Spontaneous
  Country: US (occurrence: US)
  Receive Date: 20220715
  Receipt Date: 20220810
  Transmission Date: 20221027
  Serious: No
  Sender: FDA-Public Use
  Company Number: US-Calliditas-2022CAL00193

PATIENT
  Age: 34 Year
  Sex: Male

DRUGS (8)
  1. TARPEYO [Suspect]
     Active Substance: BUDESONIDE
     Indication: IgA nephropathy
     Dosage: 16 MG (4 MG CAPSULES) ONCE DAILY
     Route: 050
     Dates: start: 20220623
  2. CARVEDILOL [Concomitant]
     Active Substance: CARVEDILOL
     Dosage: 25MG TWICE DAILY
  3. FAMOTIDINE [Concomitant]
     Active Substance: FAMOTIDINE
     Dosage: 20MG TWICE DAILY
  4. HYDROCHLOROTHIAZIDE [Concomitant]
     Active Substance: HYDROCHLOROTHIAZIDE
     Dosage: 25MG DAILY
  5. LOSARTAN [Concomitant]
     Active Substance: LOSARTAN
  6. CHOLECALCIFEROL [Concomitant]
     Active Substance: CHOLECALCIFEROL
     Dosage: 10000 IU QD
  7. ADDERALL [Concomitant]
     Active Substance: AMPHETAMINE ASPARTATE\AMPHETAMINE SULFATE\DEXTROAMPHETAMINE SACCHARATE\DEXTROAMPHETAMINE SULFATE
     Dosage: ADDERALL XR 30MG DAILY
  8. LISINOPRIL [Concomitant]
     Active Substance: LISINOPRIL
     Dosage: LISINOPRIL 10MG DAILY

REACTIONS (8)
  - Palpitations [Recovering/Resolving]
  - Anxiety [Recovering/Resolving]
  - Muscle spasms [Not Recovered/Not Resolved]
  - Blood pressure increased [Not Recovered/Not Resolved]
  - Product administration error [Unknown]
  - Product use complaint [Unknown]
  - Regurgitation [Unknown]
  - Muscle tightness [Unknown]

NARRATIVE: CASE EVENT DATE: 20220601
